FAERS Safety Report 25655984 (Version 1)
Quarter: 2025Q3

REPORT INFORMATION
  Report Type: Other
  Country: CN (occurrence: CN)
  Receive Date: 20250807
  Receipt Date: 20250807
  Transmission Date: 20251021
  Serious: Yes (Other)
  Sender: TETRAPHASE PHARMACEUTICALS, INC.
  Company Number: CN-TETRAPHASE PHARMACEUTICALS, INC-2025-ISTX-000145

PATIENT

DRUGS (1)
  1. XERAVA [Suspect]
     Active Substance: ERAVACYCLINE DIHYDROCHLORIDE
     Indication: Infection
     Dosage: 75 MG, BID
     Route: 041
     Dates: start: 20250724, end: 20250726

REACTIONS (1)
  - Blood fibrinogen decreased [Not Recovered/Not Resolved]

NARRATIVE: CASE EVENT DATE: 20250727
